FAERS Safety Report 9933588 (Version 1)
Quarter: 2014Q1

REPORT INFORMATION
  Report Type: Report from Study
  Country: US (occurrence: US)
  Receive Date: 20140228
  Receipt Date: 20140228
  Transmission Date: 20141002
  Serious: No
  Sender: FDA-Public Use
  Company Number: US-MYLANLABS-2013S1025507

PATIENT
  Age: 30 Year
  Sex: Male

DRUGS (4)
  1. AMNESTEEM CAPSULES [Suspect]
     Indication: ACNE
     Route: 048
     Dates: start: 201304, end: 201308
  2. LEXAPRO /01588501/ [Concomitant]
  3. NEXIUM [Concomitant]
  4. VALTREX [Concomitant]

REACTIONS (1)
  - Cheilitis [Recovered/Resolved]
